FAERS Safety Report 6081014-5 (Version None)
Quarter: 2009Q1

REPORT INFORMATION
  Report Type: 
  Country: None (occurrence: None)
  Receive Date: 20090217
  Receipt Date: 20090206
  Transmission Date: 20090719
  Serious: Yes (Other)
  Sender: FDA-Public Use
  Company Number: PHHY2009JP04609

PATIENT
  Sex: Male
  Weight: 58 kg

DRUGS (6)
  1. DIOVAN [Suspect]
     Indication: HYPERTENSION
     Dosage: 80 MG, QD
     Dates: start: 20080122, end: 20080929
  2. ATELEC [Concomitant]
     Indication: HYPERTENSION
     Dosage: 10 MG
     Route: 048
     Dates: start: 20080122
  3. GASMOTIN [Concomitant]
     Dosage: 15 MG
     Route: 048
     Dates: start: 20080122
  4. ZANTAC [Concomitant]
     Dosage: 150 MG
     Route: 048
     Dates: start: 20080122
  5. COMELIAN [Concomitant]
     Dosage: 300 MG
     Route: 048
     Dates: start: 20080122
  6. NEUQUINON [Concomitant]
     Dosage: 30 MG
     Route: 048
     Dates: start: 20080122

REACTIONS (1)
  - AORTIC VALVE REPLACEMENT [None]
